FAERS Safety Report 8477183-X (Version None)
Quarter: 2012Q2

REPORT INFORMATION
  Report Type: 
  Country: None (occurrence: None)
  Receive Date: 20120619
  Receipt Date: 20120614
  Transmission Date: 20120825
  Serious: Yes (Hospitalization, Disabling, Other)
  Sender: FDA-Public Use
  Company Number: 2011SP017557

PATIENT
  Age: 31 Year
  Sex: Female
  Weight: 99.7913 kg

DRUGS (2)
  1. LEVOTHYROXINE SODIUM [Concomitant]
  2. NUVARING [Suspect]
     Indication: CONTRACEPTION
     Dates: start: 20071009, end: 20071220

REACTIONS (54)
  - IMPAIRED WORK ABILITY [None]
  - SCAR [None]
  - ACTIVITIES OF DAILY LIVING IMPAIRED [None]
  - PLEURAL EFFUSION [None]
  - RASH [None]
  - FALL [None]
  - JOINT INJURY [None]
  - GASTROOESOPHAGEAL REFLUX DISEASE [None]
  - PREGNANCY [None]
  - INJECTION [None]
  - ARTHRALGIA [None]
  - SUICIDAL IDEATION [None]
  - PRURITUS [None]
  - DYSPNOEA [None]
  - VENA CAVA THROMBOSIS [None]
  - HYPERSENSITIVITY [None]
  - PULMONARY MASS [None]
  - ANTICOAGULATION DRUG LEVEL BELOW THERAPEUTIC [None]
  - WALKING AID USER [None]
  - SKIN ULCER [None]
  - VARICOSE VEIN [None]
  - HYPOTHYROIDISM [None]
  - TENDERNESS [None]
  - LYMPHADENOPATHY [None]
  - ATELECTASIS [None]
  - URINARY TRACT INFECTION [None]
  - HYPOKALAEMIA [None]
  - MULTIPLE INJURIES [None]
  - CONTUSION [None]
  - ANXIETY [None]
  - DEEP VEIN THROMBOSIS [None]
  - LYMPHOMA [None]
  - ILIAC VEIN OCCLUSION [None]
  - ANAEMIA [None]
  - CHEST PAIN [None]
  - HEADACHE [None]
  - HYPERCOAGULATION [None]
  - ENTEROCOCCUS TEST POSITIVE [None]
  - BALANCE DISORDER [None]
  - OVERDOSE [None]
  - FLANK PAIN [None]
  - DRUG SCREEN POSITIVE [None]
  - CONSTIPATION [None]
  - SLEEP APNOEA SYNDROME [None]
  - INTERNATIONAL NORMALISED RATIO DECREASED [None]
  - POST THROMBOTIC SYNDROME [None]
  - PAIN IN EXTREMITY [None]
  - CRYING [None]
  - OVERWEIGHT [None]
  - CELLULITIS [None]
  - VENOUS INSUFFICIENCY [None]
  - DEPRESSION [None]
  - PANIC ATTACK [None]
  - INSOMNIA [None]
